FAERS Safety Report 13370219 (Version 1)
Quarter: 2017Q1

REPORT INFORMATION
  Report Type: Spontaneous
  Country: US (occurrence: US)
  Receive Date: 20170324
  Receipt Date: 20170324
  Transmission Date: 20170429
  Serious: Yes (Hospitalization)
  Sender: FDA-Public Use
  Company Number: US-FRESENIUS KABI-FK201702458

PATIENT
  Age: 63 Year
  Sex: Male

DRUGS (3)
  1. FLUOROURACIL (MANUFACTURER UNKNOWN) [Suspect]
     Active Substance: FLUOROURACIL
     Indication: LUNG CARCINOMA CELL TYPE UNSPECIFIED RECURRENT
     Route: 040
  2. LEUCOVORIN. [Concomitant]
     Active Substance: LEUCOVORIN
     Indication: LUNG CARCINOMA CELL TYPE UNSPECIFIED RECURRENT
  3. IRINOTECAN [Concomitant]
     Active Substance: IRINOTECAN
     Indication: LUNG CARCINOMA CELL TYPE UNSPECIFIED RECURRENT

REACTIONS (2)
  - Off label use [Recovered/Resolved]
  - Arteriospasm coronary [Recovered/Resolved]
